FAERS Safety Report 9243253 (Version 1)
Quarter: 2013Q2

REPORT INFORMATION
  Report Type: Spontaneous
  Country: US (occurrence: US)
  Receive Date: 20130419
  Receipt Date: 20130419
  Transmission Date: 20140414
  Serious: Yes (Disabling, Other)
  Sender: FDA-Public Use
  Company Number: CHPA2013US006314

PATIENT
  Age: 60 Year
  Sex: Female

DRUGS (1)
  1. EXCEDRIN TENSION HEADACHE [Suspect]
     Indication: MIGRAINE
     Dosage: 2 DF, PRN SOMETIMES TWICE A DAY

REACTIONS (4)
  - Walking aid user [Unknown]
  - Road traffic accident [Recovered/Resolved]
  - Migraine [Unknown]
  - Disease recurrence [Unknown]
